FAERS Safety Report 4710363-5 (Version None)
Quarter: 2005Q3

REPORT INFORMATION
  Report Type: 
  Country: None (occurrence: None)
  Receive Date: 20050707
  Receipt Date: 20050627
  Transmission Date: 20060218
  Serious: Yes (Hospitalization, Other)
  Sender: FDA-Public Use
  Company Number: 2005095003

PATIENT
  Sex: Female
  Weight: 52.1637 kg

DRUGS (1)
  1. XALATAN [Suspect]
     Indication: OPEN ANGLE GLAUCOMA
     Dosage: 1 DROP IN EACH EYE (EVERY DAY), OPHTHALMIC
     Route: 047

REACTIONS (9)
  - ACQUIRED OESOPHAGEAL WEB [None]
  - CHEST DISCOMFORT [None]
  - DRUG DOSE OMISSION [None]
  - HEART RATE INCREASED [None]
  - HYPOTHYROIDISM [None]
  - INTRAOCULAR PRESSURE INCREASED [None]
  - RENAL CELL CARCINOMA STAGE UNSPECIFIED [None]
  - SENSATION OF PRESSURE [None]
  - VISUAL ACUITY REDUCED [None]
